FAERS Safety Report 10757927 (Version 1)
Quarter: 2015Q1

REPORT INFORMATION
  Report Type: Spontaneous
  Country: US (occurrence: None)
  Receive Date: 20150202
  Receipt Date: 20150202
  Transmission Date: 20150721
  Serious: Yes (Other)
  Sender: FDA-Public Use
  Company Number: None

PATIENT
  Age: 56 Year
  Sex: Female
  Weight: 61.24 kg

DRUGS (1)
  1. ATORVASTATIN [Suspect]
     Active Substance: ATORVASTATIN
     Indication: BLOOD CHOLESTEROL INCREASED
     Dosage: 1 TABKET DAUKTM TAKEN BY MOUTH
     Dates: start: 20140531, end: 20140620

REACTIONS (16)
  - Laboratory test abnormal [None]
  - Hyperaesthesia [None]
  - Onychomadesis [None]
  - Rash generalised [None]
  - Alopecia [None]
  - Swelling [None]
  - Pruritus [None]
  - Burning sensation [None]
  - Paraesthesia [None]
  - Tongue discolouration [None]
  - Skin exfoliation [None]
  - Skin hypertrophy [None]
  - Blister [None]
  - Diarrhoea [None]
  - Glossodynia [None]
  - Fatigue [None]

NARRATIVE: CASE EVENT DATE: 20140616
